APPROVED DRUG PRODUCT: CISATRACURIUM BESYLATE
Active Ingredient: CISATRACURIUM BESYLATE
Strength: EQ 2MG BASE/ML
Dosage Form/Route: INJECTABLE;INJECTION
Application: A216538 | Product #001
Applicant: HAINAN POLY PHARM CO LTD
Approved: Mar 8, 2024 | RLD: No | RS: No | Type: DISCN